FAERS Safety Report 15676784 (Version 4)
Quarter: 2019Q1

REPORT INFORMATION
  Report Type: Report from Study
  Country: NL (occurrence: NL)
  Receive Date: 20181130
  Receipt Date: 20190108
  Transmission Date: 20190417
  Serious: Yes (Other)
  Sender: FDA-Public Use
  Company Number: NL-BRISTOL-MYERS SQUIBB COMPANY-BMS-2018-110752

PATIENT
  Age: 74 Year
  Sex: Male

DRUGS (4)
  1. ETOPOPHOS [Suspect]
     Active Substance: ETOPOSIDE PHOSPHATE
     Indication: NON-SMALL CELL LUNG CANCER
     Dosage: 100 MG/M2, Q3WK
     Route: 042
     Dates: start: 20161125, end: 20170114
  2. NIVOLUMAB [Suspect]
     Active Substance: NIVOLUMAB
     Indication: NON-SMALL CELL LUNG CANCER
     Dosage: 360 MG, Q3WK
     Route: 042
     Dates: start: 20161215, end: 20170207
  3. NIVOLUMAB [Suspect]
     Active Substance: NIVOLUMAB
     Indication: PRODUCT USED FOR UNKNOWN INDICATION
     Dosage: 480 MG, Q4WK
     Route: 042
     Dates: start: 20170228, end: 20171107
  4. PARAPLATIN [Suspect]
     Active Substance: CARBOPLATIN
     Indication: NON-SMALL CELL LUNG CANCER
     Dosage: 400 MG, Q3WK
     Route: 042
     Dates: start: 20161125, end: 20170112

REACTIONS (1)
  - Myelodysplastic syndrome [Recovered/Resolved with Sequelae]

NARRATIVE: CASE EVENT DATE: 20181122
